FAERS Safety Report 4909614-3 (Version None)
Quarter: 2006Q1

REPORT INFORMATION
  Report Type: 
  Country: None (occurrence: None)
  Receive Date: 20060213
  Receipt Date: 20050930
  Transmission Date: 20060701
  Serious: No
  Sender: FDA-Public Use
  Company Number: PR-MERCK-0510USA01739

PATIENT
  Age: 67 Year
  Sex: Female
  Weight: 61 kg

DRUGS (2)
  1. VIOXX [Suspect]
     Indication: HEADACHE
     Route: 048
     Dates: start: 19990101, end: 20040101
  2. VIOXX [Suspect]
     Indication: BONE PAIN
     Route: 048
     Dates: start: 19990101, end: 20040101

REACTIONS (7)
  - ANXIETY [None]
  - BALANCE DISORDER [None]
  - CHEST PAIN [None]
  - HYPERTENSION [None]
  - MENTAL DISORDER [None]
  - OVERDOSE [None]
  - RASH MACULAR [None]
